FAERS Safety Report 6110677-0 (Version None)
Quarter: 2009Q1

REPORT INFORMATION
  Report Type: 
  Country: None (occurrence: None)
  Receive Date: 20090302
  Receipt Date: 20090224
  Transmission Date: 20090719
  Serious: Yes (Other)
  Sender: FDA-Public Use
  Company Number: CART-1000021

PATIENT
  Age: 39 Year
  Sex: Female

DRUGS (1)
  1. CARTICEL [Suspect]
     Indication: CARTILAGE INJURY
     Dosage: INTRA-ARTICULAR
     Route: 014
     Dates: start: 20081107, end: 20081107

REACTIONS (4)
  - CELLULITIS [None]
  - DEVICE RELATED INFECTION [None]
  - HAEMATOMA [None]
  - POST PROCEDURAL INFECTION [None]
